FAERS Safety Report 9698939 (Version 1)
Quarter: 2013Q4

REPORT INFORMATION
  Report Type: Spontaneous
  Country: US (occurrence: US)
  Receive Date: 20131120
  Receipt Date: 20131120
  Transmission Date: 20140711
  Serious: Yes (Other)
  Sender: FDA-Public Use
  Company Number: US-PFIZER INC-2013331779

PATIENT
  Age: 39 Year
  Sex: Male
  Weight: 88.44 kg

DRUGS (1)
  1. DILANTIN [Suspect]
     Indication: CONVULSION
     Dosage: 400 MG (4 CAPSULES OF 100MG), 1X/DAY
     Route: 048

REACTIONS (2)
  - Convulsion [Recovered/Resolved]
  - Joint dislocation [Not Recovered/Not Resolved]
